FAERS Safety Report 18222714 (Version 2)
Quarter: 2020Q3

REPORT INFORMATION
  Report Type: Spontaneous
  Country: FR (occurrence: FR)
  Receive Date: 20200902
  Receipt Date: 20200925
  Transmission Date: 20201103
  Serious: Yes (Other)
  Sender: FDA-Public Use
  Company Number: FR-GLAXOSMITHKLINE-FR2020172819

PATIENT
  Age: 64 Year
  Sex: Female
  Weight: 81 kg

DRUGS (2)
  1. ZEJULA [Suspect]
     Active Substance: NIRAPARIB
     Dosage: 100 MG
     Route: 048
     Dates: end: 20200825
  2. ZEJULA [Suspect]
     Active Substance: NIRAPARIB
     Indication: OVARIAN CANCER
     Dosage: 200 MG, QD (2 PILLS OF 100MG PER DAY)
     Dates: start: 20200801

REACTIONS (11)
  - Dizziness [Unknown]
  - Off label use [Unknown]
  - Haemoglobin decreased [Unknown]
  - Platelet count decreased [Unknown]
  - Tachycardia [Unknown]
  - Fatigue [Not Recovered/Not Resolved]
  - Vein rupture [Unknown]
  - Nausea [Unknown]
  - Balance disorder [Unknown]
  - White blood cell count decreased [Unknown]
  - Haematoma [Unknown]

NARRATIVE: CASE EVENT DATE: 20200810
